FAERS Safety Report 14956826 (Version 2)
Quarter: 2019Q2

REPORT INFORMATION
  Report Type: Spontaneous
  Country: US (occurrence: US)
  Receive Date: 20180531
  Receipt Date: 20190524
  Transmission Date: 20190711
  Serious: No
  Sender: FDA-Public Use
  Company Number: US-NOVEN PHARMACEUTICALS, INC.-US2017000609

PATIENT

DRUGS (10)
  1. GUANFACINE. [Concomitant]
     Active Substance: GUANFACINE
     Dosage: UNK, BID
  2. RITALIN [Concomitant]
     Active Substance: METHYLPHENIDATE HYDROCHLORIDE
     Dosage: UNK, BID
  3. DAYTRANA [Suspect]
     Active Substance: METHYLPHENIDATE
     Dosage: 80 MG (USING FOUR 20 MG PATCHES), QD
     Route: 062
     Dates: start: 2017
  4. UNISOM SLEEPTABS [Concomitant]
     Active Substance: DOXYLAMINE SUCCINATE
     Indication: INSOMNIA
  5. DAYTRANA [Suspect]
     Active Substance: METHYLPHENIDATE
     Dosage: APPLIED ONE 20 MG PATCH AND TWO 30 MG PATCHES TO MAKE UP FOR A DOSE OF 80 MG, QD
     Route: 062
     Dates: start: 201701, end: 201702
  6. DAYTRANA [Suspect]
     Active Substance: METHYLPHENIDATE
     Dosage: 20 MG, UNK
     Route: 062
  7. DAYTRANA [Suspect]
     Active Substance: METHYLPHENIDATE
     Indication: ATTENTION DEFICIT/HYPERACTIVITY DISORDER
     Dosage: UNK, UNK
     Route: 062
  8. DAYTRANA [Suspect]
     Active Substance: METHYLPHENIDATE
     Dosage: APPLIED FOUR 20 MG PATCHES TO MAKE UP FOR A DOSE OF 80 MG, QD
     Route: 062
     Dates: start: 201702, end: 201703
  9. DAYTRANA [Suspect]
     Active Substance: METHYLPHENIDATE
     Dosage: 80 MG (ONE 20 MG PATCH WITH TWO 30 MG PATCHES), QD
     Route: 062
     Dates: start: 20170310, end: 20170410
  10. RISPERIDONE. [Concomitant]
     Active Substance: RISPERIDONE
     Dosage: UNK, QID
     Dates: start: 2014

REACTIONS (15)
  - Aggression [Unknown]
  - Product quality issue [Unknown]
  - Off label use [Not Recovered/Not Resolved]
  - Somnambulism [Unknown]
  - Anger [Unknown]
  - Impulsive behaviour [Unknown]
  - Insomnia [Unknown]
  - Drug ineffective [Not Recovered/Not Resolved]
  - Prescribed overdose [Unknown]
  - Wrong technique in product usage process [Unknown]
  - Therapeutic product effect decreased [Not Recovered/Not Resolved]
  - Disturbance in attention [Unknown]
  - Product adhesion issue [Unknown]
  - Sleep talking [Unknown]
  - Psychomotor hyperactivity [Unknown]

NARRATIVE: CASE EVENT DATE: 2017
